FAERS Safety Report 5620776-5 (Version None)
Quarter: 2008Q1

REPORT INFORMATION
  Report Type: 
  Country: None (occurrence: None)
  Receive Date: 20080208
  Receipt Date: 20080128
  Transmission Date: 20080703
  Serious: Yes (Other)
  Sender: FDA-Public Use
  Company Number: US-PFIZER INC-2004033886

PATIENT
  Sex: Female
  Weight: 59 kg

DRUGS (6)
  1. DILANTIN [Suspect]
     Indication: CONVULSION
  2. DILANTIN [Suspect]
     Indication: EPILEPSY
  3. ALL OTHER NON-THERAPEUTIC PRODUCTS [Concomitant]
  4. PROGESTERONE [Concomitant]
  5. PROMETRIUM [Concomitant]
  6. DHEA [Concomitant]

REACTIONS (11)
  - ADVERSE EVENT [None]
  - BODY HEIGHT DECREASED [None]
  - CONVULSION [None]
  - FIBROMYALGIA [None]
  - HYPOAESTHESIA [None]
  - INFLUENZA [None]
  - NEUROPATHY PERIPHERAL [None]
  - OSTEOPOROSIS [None]
  - PARAESTHESIA [None]
  - PLANTAR FASCIITIS [None]
  - VITAMIN D DECREASED [None]
